FAERS Safety Report 9165833 (Version 1)
Quarter: 2013Q1

REPORT INFORMATION
  Report Type: Spontaneous
  Country: GB (occurrence: None)
  Receive Date: 20130304
  Receipt Date: 20130304
  Transmission Date: 20140127
  Serious: Yes (Other)
  Sender: FDA-Public Use
  Company Number: GER/UKI/13/0028262

PATIENT
  Age: 72 Year
  Sex: Male

DRUGS (2)
  1. RIVASTIGMINE [Suspect]
     Indication: DEMENTIA ALZHEIMER^S TYPE
     Route: 048
     Dates: start: 20120108, end: 20130205
  2. OMEPRAZOLE (OMEPRAZOLE) [Concomitant]

REACTIONS (3)
  - Frostbite [None]
  - Bradycardia [None]
  - Condition aggravated [None]
